FAERS Safety Report 6442316-3 (Version None)
Quarter: 2009Q4

REPORT INFORMATION
  Report Type: 
  Country: None (occurrence: None)
  Receive Date: 20091112
  Receipt Date: 20091101
  Transmission Date: 20100525
  Serious: Yes (Hospitalization)
  Sender: FDA-Public Use
  Company Number: 1-20589668

PATIENT
  Sex: Male

DRUGS (1)
  1. CYCLOBENZAPRINE HCL [Suspect]
     Indication: BACK PAIN
     Dosage: 30 MG, DAILY, ORAL
     Route: 048

REACTIONS (3)
  - MYOCLONUS [None]
  - NYSTAGMUS [None]
  - TORTICOLLIS [None]
